FAERS Safety Report 8921998 (Version 1)
Quarter: 2012Q4

REPORT INFORMATION
  Report Type: Spontaneous
  Country: US (occurrence: None)
  Receive Date: 20121120
  Receipt Date: 20121120
  Transmission Date: 20130627
  Serious: Yes (Life-Threatening)
  Sender: FDA-Public Use
  Company Number: None

PATIENT
  Age: 63 Year
  Sex: Male
  Weight: 86.64 kg

DRUGS (2)
  1. FLECAINIDE 150 MG NOT AVAILABLE [Suspect]
     Indication: ATRIAL FIBRILLATION
     Dosage: 150 mg BID po
     Route: 048
     Dates: start: 20100818, end: 20121014
  2. SERTRALINE 25 MG NOT AVAILABLE [Suspect]
     Indication: ANXIETY
     Dosage: 25 mg Daily po
     Route: 048
     Dates: start: 20121009, end: 20121115

REACTIONS (8)
  - Anxiety [None]
  - Atrial flutter [None]
  - Palpitations [None]
  - Hyperhidrosis [None]
  - Tachycardia [None]
  - Hypotension [None]
  - Renal failure acute [None]
  - Drug interaction [None]
